FAERS Safety Report 21551170 (Version 1)
Quarter: 2022Q4

REPORT INFORMATION
  Report Type: Spontaneous
  Country: US (occurrence: None)
  Receive Date: 20221103
  Receipt Date: 20221103
  Transmission Date: 20230113
  Serious: Yes (Hospitalization)
  Sender: FDA-Public Use
  Company Number: None

PATIENT
  Sex: Male

DRUGS (1)
  1. TACROLIMUS [Suspect]
     Active Substance: TACROLIMUS
     Indication: Renal transplant
     Dosage: FREQUENCY : TWICE A DAY;?
     Route: 048
     Dates: start: 202104

REACTIONS (7)
  - Pyrexia [None]
  - Chills [None]
  - Nausea [None]
  - Vomiting [None]
  - Congenital cystic kidney disease [None]
  - Infection [None]
  - COVID-19 [None]
